FAERS Safety Report 25227064 (Version 3)
Quarter: 2025Q4

REPORT INFORMATION
  Report Type: Spontaneous
  Country: US (occurrence: US)
  Receive Date: 20250422
  Receipt Date: 20251003
  Transmission Date: 20260117
  Serious: Yes (Other)
  Sender: BRISTOL-MYERS SQUIBB COMPANY
  Company Number: US-BRISTOL-MYERS SQUIBB COMPANY-2025-059161

PATIENT
  Age: 71 Year
  Sex: Male
  Weight: 83.4 kg

DRUGS (17)
  1. CAMZYOS [Suspect]
     Active Substance: MAVACAMTEN
     Indication: Hypertrophic cardiomyopathy
  2. CAMZYOS [Suspect]
     Active Substance: MAVACAMTEN
  3. CAMZYOS [Suspect]
     Active Substance: MAVACAMTEN
  4. CAMZYOS [Suspect]
     Active Substance: MAVACAMTEN
  5. VITAMINS [Concomitant]
     Active Substance: VITAMINS
     Indication: Product used for unknown indication
     Dosage: TAKE 1 CAPSULE BY MOUTH IN THE MORNING
  6. TRAZODONE [Concomitant]
     Active Substance: TRAZODONE HYDROCHLORIDE
     Indication: Product used for unknown indication
  7. METOPROLOL [Concomitant]
     Active Substance: METOPROLOL
     Indication: Product used for unknown indication
  8. TAMSULOSIN [Concomitant]
     Active Substance: TAMSULOSIN
     Indication: Product used for unknown indication
  9. HYDROCHLOROTHIAZIDE [Concomitant]
     Active Substance: HYDROCHLOROTHIAZIDE
     Indication: Product used for unknown indication
     Dosage: TAKE 1 TABLET (12.5 MG) BY MOUTH IN THE MORNING., DISP: 90 TAB RFL: 2
  10. ELIQUIS [Concomitant]
     Active Substance: APIXABAN
     Indication: Hypertrophic cardiomyopathy
     Dosage: TAKE 1 TABLET (5 MG) BY MOUTH 2 (TWO) TIMES A DAY. DISP: 180 TABLET, RFL: 3
  11. TYLENOL [Concomitant]
     Active Substance: ACETAMINOPHEN
     Indication: Product used for unknown indication
  12. AMBIEN [Concomitant]
     Active Substance: ZOLPIDEM TARTRATE
     Indication: Product used for unknown indication
  13. MIRALAX [Concomitant]
     Active Substance: POLYETHYLENE GLYCOL 3350
     Indication: Product used for unknown indication
  14. CRESTOR [Concomitant]
     Active Substance: ROSUVASTATIN CALCIUM
     Indication: Product used for unknown indication
     Dosage: TAKE 1 TABLET (20 MG) BY MOUTH IN THE MORNING., DISP: 90 TABLET, RFL: 1
  15. FLOMAX [TAMSULOSIN] [Concomitant]
     Indication: Product used for unknown indication
     Dosage: TAKE 1 CAPSULE (0.4 MG) BY MOUTH IN THE MORNING., DISP: 90 CAPSULE, RFL: 1
  16. CORLANOR [Concomitant]
     Active Substance: IVABRADINE HYDROCHLORIDE
     Indication: Computerised tomogram heart
     Dosage: TAKE 2 TABLETS (10 MG) BY MOUTH 1 (ONE) TIME IF NEEDED FOR UP TO 1 DOSE., DISP: 2 TABLET, RFL: 0
  17. TOPROL XL [Concomitant]
     Active Substance: METOPROLOL SUCCINATE
     Indication: Product used for unknown indication
     Dosage: 25 MG 24 HR TABLET, TAKE 1 MG BY MOUTH. (PATIENT NOT TAKING: REPORTED ON 6/25/2025), DISP:, RFL:

REACTIONS (8)
  - Respiratory tract congestion [Unknown]
  - Hypersensitivity [Unknown]
  - Fatigue [Unknown]
  - Dyspnoea exertional [Unknown]
  - Dizziness exertional [Unknown]
  - Ventricular hypertrophy [Unknown]
  - Aortic valve incompetence [Unknown]
  - Hyperlipidaemia [Unknown]

NARRATIVE: CASE EVENT DATE: 20240729
